FAERS Safety Report 13072086 (Version 1)
Quarter: 2016Q4

REPORT INFORMATION
  Report Type: Spontaneous
  Country: CH (occurrence: CH)
  Receive Date: 20161229
  Receipt Date: 20161229
  Transmission Date: 20170207
  Serious: Yes (Hospitalization, Other)
  Sender: FDA-Public Use
  Company Number: CH-SA-2016SA232832

PATIENT
  Age: 12 Month
  Sex: Male
  Weight: 2.92 kg

DRUGS (5)
  1. STILNOX CR [Suspect]
     Active Substance: ZOLPIDEM TARTRATE
     Indication: EATING DISORDER
     Route: 064
     Dates: start: 2015, end: 20160422
  2. TRITTICO [Suspect]
     Active Substance: TRAZODONE HYDROCHLORIDE
     Indication: DEPRESSION
     Route: 064
     Dates: start: 2015
  3. STILNOX CR [Suspect]
     Active Substance: ZOLPIDEM TARTRATE
     Indication: BORDERLINE PERSONALITY DISORDER
     Route: 064
     Dates: start: 2015, end: 20160422
  4. TRITTICO [Suspect]
     Active Substance: TRAZODONE HYDROCHLORIDE
     Indication: EATING DISORDER
     Route: 064
     Dates: start: 2015
  5. TRUXAL [Suspect]
     Active Substance: CHLORPROTHIXENE
     Indication: BORDERLINE PERSONALITY DISORDER
     Route: 064
     Dates: start: 2016

REACTIONS (5)
  - Exposure during pregnancy [Unknown]
  - Hypoglycaemia neonatal [Recovered/Resolved]
  - Hyperbilirubinaemia neonatal [Recovered/Resolved]
  - Foetal growth restriction [Recovered/Resolved]
  - Neonatal respiratory distress syndrome [Recovered/Resolved]

NARRATIVE: CASE EVENT DATE: 20160926
